FAERS Safety Report 4323369-5 (Version None)
Quarter: 2004Q1

REPORT INFORMATION
  Report Type: 
  Country: None (occurrence: None)
  Receive Date: 20040325
  Receipt Date: 20010731
  Transmission Date: 20041129
  Serious: Yes (Hospitalization, Other)
  Sender: FDA-Public Use
  Company Number: US-GLAXOSMITHKLINE-A0350706A

PATIENT
  Age: 41 Year
  Sex: Male
  Weight: 119.27 kg

DRUGS (5)
  1. ESKALITH [Suspect]
     Indication: BIPOLAR I DISORDER
     Route: 048
     Dates: start: 19960401
  2. LITHIUM CARBONATE [Suspect]
     Indication: BIPOLAR I DISORDER
     Dosage: 450MG SEE DOSAGE TEXT
     Route: 048
     Dates: start: 20040201, end: 20040301
  3. RISPERDAL [Concomitant]
     Indication: PSYCHOTIC DISORDER
  4. NAVANE [Concomitant]
     Indication: SCHIZOPHRENIA
     Dosage: 15MG AT NIGHT
     Route: 065
  5. COGENTIN [Concomitant]
     Route: 065

REACTIONS (26)
  - BIPOLAR I DISORDER [None]
  - DEPRESSION [None]
  - DRUG INEFFECTIVE [None]
  - DRUG LEVEL DECREASED [None]
  - DRUG LEVEL INCREASED [None]
  - DRUG TOXICITY [None]
  - DRY MOUTH [None]
  - DYSGEUSIA [None]
  - HALLUCINATION, AUDITORY [None]
  - IRRITABILITY [None]
  - LIBIDO DECREASED [None]
  - MANIA [None]
  - MEDICATION ERROR [None]
  - NOCTURIA [None]
  - PERIODONTAL DISEASE [None]
  - POLLAKIURIA [None]
  - PSYCHOTIC DISORDER [None]
  - SCHIZOPHRENIA [None]
  - SELF-INJURIOUS IDEATION [None]
  - SOMNOLENCE [None]
  - SUICIDAL IDEATION [None]
  - THERAPEUTIC AGENT TOXICITY [None]
  - THIRST [None]
  - TREATMENT NONCOMPLIANCE [None]
  - VISUAL DISTURBANCE [None]
  - VOMITING [None]
